FAERS Safety Report 19674347 (Version 1)
Quarter: 2021Q3

REPORT INFORMATION
  Report Type: Spontaneous
  Country: FR (occurrence: FR)
  Receive Date: 20210809
  Receipt Date: 20210809
  Transmission Date: 20211014
  Serious: Yes (Hospitalization)
  Sender: FDA-Public Use
  Company Number: FR-AUROBINDO-AUR-APL-2021-033602

PATIENT
  Age: 43 Year
  Sex: Male
  Weight: 68 kg

DRUGS (2)
  1. GABAPENTIN. [Suspect]
     Active Substance: GABAPENTIN
     Indication: NEURALGIA
     Dosage: 300 MILLIGRAM,3 TIMES A DAY
     Route: 048
     Dates: start: 202103, end: 202106
  2. GABAPENTIN. [Suspect]
     Active Substance: GABAPENTIN
     Dosage: 600 MILLIGRAM,3 TIMES A DAY
     Route: 048
     Dates: start: 202106, end: 20210717

REACTIONS (1)
  - Dyskinesia [Recovered/Resolved]

NARRATIVE: CASE EVENT DATE: 202103
